FAERS Safety Report 22610036 (Version 1)
Quarter: 2023Q2

REPORT INFORMATION
  Report Type: Spontaneous
  Country: ES (occurrence: ES)
  Receive Date: 20230616
  Receipt Date: 20230616
  Transmission Date: 20230722
  Serious: Yes (Hospitalization)
  Sender: FDA-Public Use
  Company Number: ES-ROCHE-1852422

PATIENT
  Age: 73 Year
  Sex: Female
  Weight: 58.7 kg

DRUGS (47)
  1. DOXORUBICIN HYDROCHLORIDE [Suspect]
     Active Substance: DOXORUBICIN HYDROCHLORIDE
     Dosage: FREQ:21 D;MOST RECENT CYCLE ON 30/NOV/2016
     Route: 042
     Dates: start: 20160818
  2. DOXORUBICIN HYDROCHLORIDE [Suspect]
     Active Substance: DOXORUBICIN HYDROCHLORIDE
     Dosage: FREQ:21 D;
     Route: 042
     Dates: start: 20160825
  3. DOXORUBICIN HYDROCHLORIDE [Suspect]
     Active Substance: DOXORUBICIN HYDROCHLORIDE
     Dosage: FREQ:21 D;
     Route: 042
     Dates: start: 20161020, end: 20161020
  4. DOXORUBICIN HYDROCHLORIDE [Suspect]
     Active Substance: DOXORUBICIN HYDROCHLORIDE
     Dosage: FREQ:21 D;
     Route: 042
     Dates: start: 20161110
  5. DOXORUBICIN HYDROCHLORIDE [Suspect]
     Active Substance: DOXORUBICIN HYDROCHLORIDE
     Dosage: FREQ:21 D;
     Route: 042
     Dates: start: 20161130
  6. VINCRISTINE [Suspect]
     Active Substance: VINCRISTINE
     Indication: Diffuse large B-cell lymphoma
     Dosage: FREQ:21 DAYS;MOST RECENT CYCLE ON 30/NOV/2016
     Route: 042
     Dates: start: 20160818
  7. VINCRISTINE [Suspect]
     Active Substance: VINCRISTINE
     Dosage: FREQUENCY: 21 DAYS.
     Route: 042
     Dates: start: 20160825
  8. VINCRISTINE [Suspect]
     Active Substance: VINCRISTINE
     Dosage: FREQ:21 DAYS
     Route: 042
     Dates: start: 20161020, end: 20161020
  9. VINCRISTINE [Suspect]
     Active Substance: VINCRISTINE
     Dosage: FREQ:21 DAYS
     Route: 042
     Dates: start: 20161110
  10. VINCRISTINE [Suspect]
     Active Substance: VINCRISTINE
     Dosage: FREQ:21 DAYS
     Route: 042
     Dates: start: 20161130
  11. RITUXIMAB [Suspect]
     Active Substance: RITUXIMAB
     Indication: Diffuse large B-cell lymphoma
     Dosage: FREQUENCY:21 DAYS; MOST RECENT CYCLE ON 30/NOV/2016
     Route: 048
     Dates: start: 20160818
  12. RITUXIMAB [Suspect]
     Active Substance: RITUXIMAB
     Dosage: FREQUENCY:21 DAYS
     Route: 048
     Dates: start: 20160825, end: 20161130
  13. RITUXIMAB [Suspect]
     Active Substance: RITUXIMAB
     Dosage: FREQUENCY:21 DAYS
     Route: 048
     Dates: start: 20161020
  14. RITUXIMAB [Suspect]
     Active Substance: RITUXIMAB
     Dosage: FREQUENCY:21 DAYS
     Route: 048
     Dates: start: 20161110
  15. RITUXIMAB [Suspect]
     Active Substance: RITUXIMAB
     Dosage: FREQUENCY:21 DAYS
     Route: 048
     Dates: start: 20161130
  16. LENALIDOMIDE [Suspect]
     Active Substance: LENALIDOMIDE
     Indication: Diffuse large B-cell lymphoma
     Dosage: 15 MG, SOLUTION FOR INFUSION
     Route: 042
     Dates: start: 20160818
  17. LENALIDOMIDE [Suspect]
     Active Substance: LENALIDOMIDE
     Dosage: UNK, SOLUTION FOR INFUSION
     Route: 042
     Dates: start: 20160825
  18. LENALIDOMIDE [Suspect]
     Active Substance: LENALIDOMIDE
     Dosage: UNK, SOLUTION FOR INFUSION
     Route: 042
     Dates: start: 20161020, end: 20161029
  19. LENALIDOMIDE [Suspect]
     Active Substance: LENALIDOMIDE
     Dosage: UNK, SOLUTION FOR INFUSION
     Route: 042
     Dates: start: 20161031, end: 20161102
  20. LENALIDOMIDE [Suspect]
     Active Substance: LENALIDOMIDE
     Dosage: UNK, SOLUTION FOR INFUSION
     Route: 042
     Dates: start: 20161110
  21. LENALIDOMIDE [Suspect]
     Active Substance: LENALIDOMIDE
     Dosage: UNK, CAPSULE
     Route: 048
     Dates: start: 20161130, end: 20161207
  22. CYCLOPHOSPHAMIDE [Suspect]
     Active Substance: CYCLOPHOSPHAMIDE
     Indication: Diffuse large B-cell lymphoma
     Dosage: FREQUENCY:21 DAYS;MOST RECENT CYCLE ON 10/NOV/2016
     Route: 042
     Dates: start: 20160818
  23. CYCLOPHOSPHAMIDE [Suspect]
     Active Substance: CYCLOPHOSPHAMIDE
     Dosage: FREQUENCY:21 DAYS
     Route: 042
     Dates: start: 20160825
  24. CYCLOPHOSPHAMIDE [Suspect]
     Active Substance: CYCLOPHOSPHAMIDE
     Dosage: FREQUENCY:21 DAYS
     Route: 042
     Dates: start: 20161020, end: 20161110
  25. CYCLOPHOSPHAMIDE [Suspect]
     Active Substance: CYCLOPHOSPHAMIDE
     Dosage: FREQUENCY:21 DAYS
     Route: 042
     Dates: start: 20161020, end: 20161020
  26. CYCLOPHOSPHAMIDE [Suspect]
     Active Substance: CYCLOPHOSPHAMIDE
     Dosage: FREQUENCY:21 DAYS;
     Route: 042
     Dates: start: 20161110
  27. PREDNISONE [Suspect]
     Active Substance: PREDNISONE
     Indication: Diffuse large B-cell lymphoma
     Dosage: MOST RECENT CYCLE ON 30/NOV/2016
     Route: 048
     Dates: start: 20160818
  28. PREDNISONE [Suspect]
     Active Substance: PREDNISONE
     Dosage: 100 MG
     Route: 048
     Dates: start: 20160825
  29. PREDNISONE [Suspect]
     Active Substance: PREDNISONE
     Dosage: 100 MG
     Route: 048
     Dates: start: 20161020, end: 20161024
  30. PREDNISONE [Suspect]
     Active Substance: PREDNISONE
     Dosage: 100 MG
     Route: 048
     Dates: start: 20161020, end: 20161024
  31. PREDNISONE [Suspect]
     Active Substance: PREDNISONE
     Dosage: 100 MG
     Route: 048
     Dates: start: 20161110
  32. PREDNISONE [Suspect]
     Active Substance: PREDNISONE
     Dosage: MOST RECENT CYCLE ON 30/NOV/2016
     Route: 048
     Dates: start: 20161130
  33. CARVEDILOL [Concomitant]
     Active Substance: CARVEDILOL
     Dosage: UNK
  34. SODIUM CHLORIDE [Concomitant]
     Active Substance: SODIUM CHLORIDE
     Indication: Hypotension
     Dosage: UNK
  35. ACYCLOVIR [Concomitant]
     Active Substance: ACYCLOVIR
     Indication: Antiviral prophylaxis
     Dosage: FREQUENCY: 24 HOURS
  36. ACYCLOVIR [Concomitant]
     Active Substance: ACYCLOVIR
     Indication: Antiviral prophylaxis
     Dosage: 400 MG, 1X/DAY
     Dates: start: 20161130
  37. LEVOTHYROXINE SODIUM [Concomitant]
     Active Substance: LEVOTHYROXINE SODIUM
     Indication: Hypothyroidism
     Dosage: FREQUENCY: 24 HOURS
  38. PANTOPRAZOLE [Concomitant]
     Active Substance: PANTOPRAZOLE
     Indication: Prophylaxis against gastrointestinal ulcer
     Dosage: UNK
  39. SULFAMETHOXAZOLE\TRIMETHOPRIM [Concomitant]
     Active Substance: SULFAMETHOXAZOLE\TRIMETHOPRIM
     Indication: Antifungal prophylaxis
     Dosage: 800/1600 MG, EVERY 72 HOURS
  40. LEVOTHYROXINE SODIUM [Concomitant]
     Active Substance: LEVOTHYROXINE SODIUM
     Indication: Hypothyroidism
     Dosage: FREQUENCY:24 HOURS
  41. LEVOTHYROXINE SODIUM [Concomitant]
     Active Substance: LEVOTHYROXINE SODIUM
     Indication: Hypotension
     Dosage: 25 MG
     Dates: start: 20161130
  42. ENOXAPARIN [Concomitant]
     Active Substance: ENOXAPARIN
     Indication: Thrombosis prophylaxis
     Dosage: FREQUENCY: 24 HOURS
  43. PANTOPRAZOLE SODIUM [Concomitant]
     Active Substance: PANTOPRAZOLE SODIUM
     Indication: Gastritis prophylaxis
     Dosage: FREQUENCY: 24 HOURS
  44. PANTOPRAZOLE SODIUM [Concomitant]
     Active Substance: PANTOPRAZOLE SODIUM
     Dosage: 20 MG, 1X/DAY
     Dates: start: 20161130
  45. FILGRASTIM [Concomitant]
     Active Substance: FILGRASTIM
     Indication: Prophylaxis
     Dosage: 300 UG, 1X/DAY
  46. VALSARTAN [Concomitant]
     Active Substance: VALSARTAN
     Indication: Hypertension
     Dosage: FREQUENCY:24 HOURS
  47. BISOPROLOL [Concomitant]
     Active Substance: BISOPROLOL
     Indication: Hypertension
     Dosage: FREQUENCY:24 HOURS

REACTIONS (6)
  - Neutropenia [Recovered/Resolved]
  - Vomiting [Recovered/Resolved]
  - Diarrhoea [Recovered/Resolved]
  - Clostridium difficile colitis [Recovered/Resolved]
  - Thrombocytopenia [Recovered/Resolved]
  - Abdominal pain [Recovered/Resolved]

NARRATIVE: CASE EVENT DATE: 20161027
